FAERS Safety Report 9369288 (Version 1)
Quarter: 2013Q2

REPORT INFORMATION
  Report Type: Spontaneous
  Country: CZ (occurrence: CZ)
  Receive Date: 20130626
  Receipt Date: 20130626
  Transmission Date: 20140414
  Serious: Yes (Hospitalization, Other)
  Sender: FDA-Public Use
  Company Number: CZ-ROCHE-1239984

PATIENT
  Age: 14 Year
  Sex: Male
  Weight: 44 kg

DRUGS (9)
  1. ROACTEMRA [Suspect]
     Indication: JUVENILE IDIOPATHIC ARTHRITIS
     Route: 041
     Dates: start: 20130506, end: 20130614
  2. RANISAN [Concomitant]
     Indication: PROPHYLAXIS AGAINST GASTROINTESTINAL ULCER
     Route: 048
     Dates: start: 201305
  3. CALTRATE 600 [Concomitant]
     Indication: OSTEOPOROSIS PROPHYLAXIS
     Route: 048
     Dates: start: 201305
  4. LANTUS [Concomitant]
     Indication: DIABETES MELLITUS
     Route: 058
     Dates: start: 20130430
  5. NOVORAPID PENFILL [Concomitant]
     Indication: DIABETES MELLITUS
     Route: 065
     Dates: start: 20130430
  6. ESSENTIALE FORTE N [Concomitant]
     Indication: LIVER DISORDER
     Route: 048
     Dates: start: 201305
  7. METYPRED (CZECH REPUBLIC) [Concomitant]
     Indication: JUVENILE IDIOPATHIC ARTHRITIS
     Route: 048
     Dates: start: 20130401
  8. VIGANTOL [Concomitant]
     Indication: OSTEOPOROSIS PROPHYLAXIS
     Route: 048
     Dates: start: 201304
  9. SILYMARIN [Concomitant]
     Indication: LIVER DISORDER
     Route: 048
     Dates: start: 201305

REACTIONS (5)
  - Nausea [Recovered/Resolved]
  - Chills [Recovered/Resolved]
  - Feeling hot [Recovered/Resolved]
  - Urticaria [Recovered/Resolved]
  - Vomiting [Recovered/Resolved]
